FAERS Safety Report 24433603 (Version 1)
Quarter: 2024Q4

REPORT INFORMATION
  Report Type: Spontaneous
  Country: US (occurrence: US)
  Receive Date: 20241014
  Receipt Date: 20241014
  Transmission Date: 20250115
  Serious: No
  Sender: SPROUT PHARMACEUTICALS, INC.
  Company Number: US-Sprout Pharmaceuticals, Inc.-2023SP000349

PATIENT
  Age: 55 Year
  Sex: Female

DRUGS (2)
  1. ADDYI [Suspect]
     Active Substance: FLIBANSERIN
     Indication: Product used for unknown indication
     Dosage: RX # 1379056
     Route: 048
     Dates: start: 20231026, end: 20231126
  2. ADDYI [Suspect]
     Active Substance: FLIBANSERIN
     Indication: Libido decreased

REACTIONS (1)
  - Drug ineffective [Recovered/Resolved]

NARRATIVE: CASE EVENT DATE: 20231001
